FAERS Safety Report 4962380-8 (Version None)
Quarter: 2006Q2

REPORT INFORMATION
  Report Type: 
  Country: None (occurrence: None)
  Receive Date: 20060404
  Receipt Date: 20030523
  Transmission Date: 20061013
  Serious: Yes (Hospitalization, Other)
  Sender: FDA-Public Use
  Company Number: US-AMGEN-US038385

PATIENT
  Sex: Female
  Weight: 64 kg

DRUGS (13)
  1. PROCRIT [Suspect]
     Indication: RENAL FAILURE CHRONIC
     Route: 058
     Dates: start: 20020820, end: 20030720
  2. DILANTIN [Concomitant]
     Dates: start: 20030201, end: 20030522
  3. NORVASC [Concomitant]
  4. METOPROLOL [Concomitant]
  5. LASIX [Concomitant]
  6. PROCARDIA [Concomitant]
  7. FERROUS SULFATE TAB [Concomitant]
  8. NPH INSULIN [Concomitant]
  9. AVANDIA [Concomitant]
     Dates: start: 20030501
  10. PROGRAF [Concomitant]
     Dates: start: 20050218
  11. CELLCEPT [Concomitant]
     Dates: start: 20050218
  12. PREDNISONE [Concomitant]
     Dates: start: 20050218
  13. ISONIAZID [Concomitant]
     Dates: start: 20030701

REACTIONS (14)
  - ANAEMIA [None]
  - ANTI-ERYTHROPOIETIN ANTIBODY POSITIVE [None]
  - APLASIA PURE RED CELL [None]
  - BLOOD CREATININE INCREASED [None]
  - BLOOD IRON ABNORMAL [None]
  - BLOOD IRON INCREASED [None]
  - BLOOD PARATHYROID HORMONE INCREASED [None]
  - BONE MARROW FAILURE [None]
  - CONFUSIONAL STATE [None]
  - CONVULSION [None]
  - MENINGIOMA [None]
  - SERUM FERRITIN INCREASED [None]
  - STAPHYLOCOCCAL BACTERAEMIA [None]
  - THERAPEUTIC RESPONSE DECREASED [None]
